FAERS Safety Report 16323775 (Version 1)
Quarter: 2019Q2

REPORT INFORMATION
  Report Type: Spontaneous
  Country: NL (occurrence: NL)
  Receive Date: 20190517
  Receipt Date: 20190517
  Transmission Date: 20190711
  Serious: Yes (Other)
  Sender: FDA-Public Use
  Company Number: PHHY2019NL110708

PATIENT
  Age: 63 Year
  Sex: Female

DRUGS (1)
  1. METHOTREXATE. [Suspect]
     Active Substance: METHOTREXATE
     Indication: RHEUMATIC DISORDER
     Dosage: 1 DF, QW
     Route: 051
     Dates: start: 20190308

REACTIONS (4)
  - Product packaging difficult to open [Unknown]
  - Injection site pain [Unknown]
  - Needle issue [Unknown]
  - Syringe issue [Unknown]
